FAERS Safety Report 16342183 (Version 1)
Quarter: 2019Q2

REPORT INFORMATION
  Report Type: Spontaneous
  Country: US (occurrence: US)
  Receive Date: 20190521
  Receipt Date: 20190521
  Transmission Date: 20190711
  Serious: Yes (Hospitalization)
  Sender: FDA-Public Use
  Company Number: None

PATIENT
  Age: 81 Year
  Sex: Female
  Weight: 85 kg

DRUGS (2)
  1. FLUCONAZOLE. [Suspect]
     Active Substance: FLUCONAZOLE
     Route: 048
  2. WARFARIN [Suspect]
     Active Substance: WARFARIN

REACTIONS (2)
  - Inhibitory drug interaction [None]
  - International normalised ratio increased [None]

NARRATIVE: CASE EVENT DATE: 20190520
